FAERS Safety Report 13443051 (Version 1)
Quarter: 2017Q2

REPORT INFORMATION
  Report Type: Spontaneous
  Country: US (occurrence: US)
  Receive Date: 20170414
  Receipt Date: 20170414
  Transmission Date: 20170830
  Serious: No
  Sender: FDA-Public Use
  Company Number: US-TEVA-751457ACC

PATIENT
  Age: 17 Year
  Sex: Female
  Weight: 103.97 kg

DRUGS (2)
  1. PARAGARD T 380A [Suspect]
     Active Substance: COPPER
     Indication: CONTRACEPTION
     Dates: start: 20170306, end: 20170314
  2. PARAGARD T 380A [Suspect]
     Active Substance: COPPER
     Dates: start: 20170314

REACTIONS (3)
  - Device expulsion [Recovered/Resolved]
  - Discomfort [Recovered/Resolved]
  - Dysmenorrhoea [Recovered/Resolved]

NARRATIVE: CASE EVENT DATE: 20170306
